FAERS Safety Report 8371223-4 (Version None)
Quarter: 2012Q2

REPORT INFORMATION
  Report Type: 
  Country: None (occurrence: None)
  Receive Date: 20120518
  Receipt Date: 20120511
  Transmission Date: 20120825
  Serious: No
  Sender: FDA-Public Use
  Company Number: US-BAYER-2012-030208

PATIENT
  Age: 47 Year
  Sex: Female

DRUGS (3)
  1. MIRENA [Suspect]
     Indication: CONTRACEPTION
     Dosage: 20 ?G/D, CONT
     Route: 015
     Dates: start: 20120111, end: 20120118
  2. MIRENA [Suspect]
     Indication: MENORRHAGIA
  3. DOXYCYCLINE [Concomitant]
     Indication: ENDOMETRIOSIS
     Dosage: 100 MG, BID
     Route: 048
     Dates: start: 20120101, end: 20120101

REACTIONS (3)
  - UTERINE SPASM [None]
  - UTERINE PAIN [None]
  - DISCOMFORT [None]
